FAERS Safety Report 18700573 (Version 3)
Quarter: 2021Q1

REPORT INFORMATION
  Report Type: Report from Study
  Country: None (occurrence: US)
  Receive Date: 20210105
  Receipt Date: 20210309
  Transmission Date: 20210419
  Serious: Yes (Death, Hospitalization)
  Sender: FDA-Public Use
  Company Number: US-ABBVIE-21K-163-3716028-00

PATIENT
  Age: 58 Year
  Sex: Male
  Weight: 88.53 kg

DRUGS (4)
  1. IMBRUVICA [Suspect]
     Active Substance: IBRUTINIB
     Indication: MANTLE CELL LYMPHOMA
     Route: 048
     Dates: end: 202012
  2. IMBRUVICA [Suspect]
     Active Substance: IBRUTINIB
     Indication: MANTLE CELL LYMPHOMA
     Route: 048
     Dates: start: 202007, end: 202101
  3. IMBRUVICA [Suspect]
     Active Substance: IBRUTINIB
     Route: 048
     Dates: start: 202006, end: 20201210
  4. VENCLEXTA [Suspect]
     Active Substance: VENETOCLAX
     Indication: MANTLE CELL LYMPHOMA
     Route: 048
     Dates: start: 202006

REACTIONS (4)
  - Seizure [Not Recovered/Not Resolved]
  - Mantle cell lymphoma [Fatal]
  - Blood sodium decreased [Unknown]
  - Unevaluable event [Not Recovered/Not Resolved]

NARRATIVE: CASE EVENT DATE: 202012
